FAERS Safety Report 20825707 (Version 2)
Quarter: 2022Q2

REPORT INFORMATION
  Report Type: Spontaneous
  Country: None (occurrence: IT)
  Receive Date: 20220513
  Receipt Date: 20220518
  Transmission Date: 20220721
  Serious: Yes (Death, Life-Threatening, Hospitalization, Other)
  Sender: FDA-Public Use
  Company Number: IT-Nova Laboratories Limited-2128750

PATIENT

DRUGS (22)
  1. PURIXAN [Suspect]
     Active Substance: MERCAPTOPURINE
     Indication: B precursor type acute leukaemia
  2. PREDNISOLONE [Suspect]
     Active Substance: PREDNISOLONE
  3. BORTEZOMIB [Suspect]
     Active Substance: BORTEZOMIB
  4. DOXORUBICIN [Suspect]
     Active Substance: DOXORUBICIN
  5. VINCRISTINE [Suspect]
     Active Substance: VINCRISTINE
  6. DAUNORUBICIN [Suspect]
     Active Substance: DAUNORUBICIN
  7. IFOSFAMIDE [Suspect]
     Active Substance: IFOSFAMIDE
  8. THIOGUANINE ANHYDROUS [Suspect]
     Active Substance: THIOGUANINE ANHYDROUS
  9. BLINATUMOMAB [Suspect]
     Active Substance: BLINATUMOMAB
  10. ETOPOSIDE [Suspect]
     Active Substance: ETOPOSIDE
  11. FLUDARABINE [Suspect]
     Active Substance: FLUDARABINE PHOSPHATE
  12. CYCLOPHOSPHAMIDE [Suspect]
     Active Substance: CYCLOPHOSPHAMIDE
  13. VINDESINE [Suspect]
     Active Substance: VINDESINE
  14. DEXAMETHASONE [Suspect]
     Active Substance: DEXAMETHASONE
  15. CYTARABINE [Suspect]
     Active Substance: CYTARABINE
  16. PEGASPARGASE [Suspect]
     Active Substance: PEGASPARGASE
  17. ASPARAGINASE ERWINIA CHRYSANTHEMI [Suspect]
     Active Substance: ASPARAGINASE ERWINIA CHRYSANTHEMI
  18. METHOTREXATE [Suspect]
     Active Substance: METHOTREXATE
  19. DOXORUBICIN HYDROCHLORIDE [Suspect]
     Active Substance: DOXORUBICIN HYDROCHLORIDE
  20. PIPERACILLIN AND TAZOBACTAM [Concomitant]
     Active Substance: PIPERACILLIN SODIUM\TAZOBACTAM SODIUM
  21. FOSCAVIR [Concomitant]
     Active Substance: FOSCARNET SODIUM
  22. AMPHOTERICIN B [Concomitant]
     Active Substance: AMPHOTERICIN B

REACTIONS (7)
  - Tracheitis [Fatal]
  - Aspergillus infection [Fatal]
  - Pulmonary haemorrhage [Fatal]
  - Interstitial lung disease [Fatal]
  - Cytomegalovirus infection [Fatal]
  - Bone marrow failure [Unknown]
  - Rhinovirus infection [Unknown]
